FAERS Safety Report 7383544-2 (Version None)
Quarter: 2011Q1

REPORT INFORMATION
  Report Type: 
  Country: None (occurrence: None)
  Receive Date: 20110330
  Receipt Date: 20110316
  Transmission Date: 20110831
  Serious: Yes (Death)
  Sender: FDA-Public Use
  Company Number: US-BAYER-200934677NA

PATIENT
  Sex: Female

DRUGS (10)
  1. OPTIMARK [Suspect]
     Indication: ANGIOGRAM
  2. MULTIHANCE [Suspect]
     Indication: ANGIOGRAM
  3. MAGNEVIST [Suspect]
  4. PROHANCE [Suspect]
  5. MAGNEVIST [Suspect]
     Indication: ANGIOGRAM
  6. OMNISCAN [Suspect]
     Indication: ANGIOGRAM
  7. OPTIMARK [Suspect]
     Indication: NUCLEAR MAGNETIC RESONANCE IMAGING
  8. PROHANCE [Suspect]
     Indication: ANGIOGRAM
  9. MULTIHANCE [Suspect]
  10. OMNISCAN [Suspect]

REACTIONS (9)
  - SKIN FIBROSIS [None]
  - PAIN [None]
  - NEPHROGENIC SYSTEMIC FIBROSIS [None]
  - DEFORMITY [None]
  - GENERAL PHYSICAL HEALTH DETERIORATION [None]
  - ARTHROFIBROSIS [None]
  - SCAR [None]
  - JOINT CONTRACTURE [None]
  - EXTREMITY CONTRACTURE [None]
